FAERS Safety Report 20489651 (Version 1)
Quarter: 2022Q1

REPORT INFORMATION
  Report Type: Spontaneous
  Country: FR (occurrence: FR)
  Receive Date: 20220218
  Receipt Date: 20220218
  Transmission Date: 20220423
  Serious: Yes (Death, Hospitalization)
  Sender: FDA-Public Use
  Company Number: FR-GW PHARMA-202201FRGW00421

PATIENT

DRUGS (10)
  1. CANNABIDIOL [Suspect]
     Active Substance: CANNABIDIOL
     Indication: Lennox-Gastaut syndrome
     Dosage: 20 MILLIGRAM/KILOGRAM, QD
     Route: 048
     Dates: start: 20191018, end: 20210101
  2. CLONAZEPAM [Concomitant]
     Active Substance: CLONAZEPAM
     Indication: Lennox-Gastaut syndrome
     Dosage: 1.4 MILLIGRAM, QD
     Route: 048
     Dates: end: 20210101
  3. PHENOBARBITAL [Concomitant]
     Active Substance: PHENOBARBITAL
     Indication: Lennox-Gastaut syndrome
     Dosage: 50 MILLIGRAM, QD
     Route: 048
  4. STIRIPENTOL [Concomitant]
     Active Substance: STIRIPENTOL
     Indication: Lennox-Gastaut syndrome
     Dosage: 1250 MILLIGRAM, QD
     Route: 048
     Dates: end: 20210101
  5. VALPROATE SODIUM [Concomitant]
     Active Substance: VALPROATE SODIUM
     Indication: Lennox-Gastaut syndrome
     Dosage: 1000 MILLIGRAM, QD
     Route: 048
     Dates: end: 20210101
  6. TOPIRAMATE [Concomitant]
     Active Substance: TOPIRAMATE
     Indication: Lennox-Gastaut syndrome
     Dosage: 100 MILLIGRAM, QD
     Route: 048
     Dates: end: 20210101
  7. CLOBAZAM [Concomitant]
     Active Substance: CLOBAZAM
     Indication: Lennox-Gastaut syndrome
     Dosage: 20 MILLIGRAM, QD
     Route: 048
     Dates: start: 20200327, end: 20210101
  8. TRIHEXYPHENIDYL [Concomitant]
     Active Substance: TRIHEXYPHENIDYL
     Indication: Lennox-Gastaut syndrome
     Dosage: 9 MILLIGRAM, QD
     Route: 048
     Dates: end: 20210101
  9. MELATONIN [Concomitant]
     Active Substance: MELATONIN
     Indication: Lennox-Gastaut syndrome
     Dosage: 10 MILLIGRAM, QD
     Route: 048
     Dates: end: 20210101
  10. HYDROCHLOROTHIAZIDE [Concomitant]
     Active Substance: HYDROCHLOROTHIAZIDE
     Indication: Lennox-Gastaut syndrome
     Dosage: 25 MILLIGRAM, QD
     Route: 048
     Dates: end: 20210101

REACTIONS (3)
  - Death [Fatal]
  - Pseudomonas infection [Recovered/Resolved]
  - Acute respiratory failure [Recovered/Resolved]

NARRATIVE: CASE EVENT DATE: 20201213
